FAERS Safety Report 23411136 (Version 1)
Quarter: 2024Q1

REPORT INFORMATION
  Report Type: Spontaneous
  Country: IT (occurrence: IT)
  Receive Date: 20240117
  Receipt Date: 20240117
  Transmission Date: 20240410
  Serious: Yes (Hospitalization, Other)
  Sender: FDA-Public Use
  Company Number: IT-OTSUKA-2023_033890

PATIENT
  Age: 64 Year
  Sex: Male
  Weight: 91 kg

DRUGS (9)
  1. ZOLPIDEM [Suspect]
     Active Substance: ZOLPIDEM TARTRATE
     Indication: Product used for unknown indication
     Dosage: 10 MILLIGRAM
     Route: 065
  2. ARIPIPRAZOLE [Suspect]
     Active Substance: ARIPIPRAZOLE
     Indication: Product used for unknown indication
     Dosage: 2.5 MILLIGRAM
     Route: 065
  3. QUETIAPINE [Suspect]
     Active Substance: QUETIAPINE
     Indication: Product used for unknown indication
     Dosage: 50 MILLIGRAM
     Route: 065
  4. FLUVOXAMINE [Suspect]
     Active Substance: FLUVOXAMINE
     Indication: Product used for unknown indication
     Dosage: 50 MILLIGRAM
     Route: 065
  5. FLUVOXAMINE [Suspect]
     Active Substance: FLUVOXAMINE
     Dosage: 100 MILLIGRAM
     Route: 065
  6. CLONAZEPAM [Suspect]
     Active Substance: CLONAZEPAM
     Indication: Product used for unknown indication
     Dosage: 2 MILLIGRAM
     Route: 065
  7. LITHIUM SULFATE [Suspect]
     Active Substance: LITHIUM SULFATE
     Indication: Product used for unknown indication
     Dosage: 83 MILLIGRAM
     Route: 065
  8. MIANSERIN [Suspect]
     Active Substance: MIANSERIN
     Indication: Product used for unknown indication
     Dosage: 30 MILLIGRAM
     Route: 065
  9. PROPRANOLOL [Concomitant]
     Active Substance: PROPRANOLOL HYDROCHLORIDE
     Indication: Hypertension
     Dosage: 40 MILLIGRAM
     Route: 065

REACTIONS (1)
  - Serotonin syndrome [Unknown]
